FAERS Safety Report 17501470 (Version 2)
Quarter: 2020Q1

REPORT INFORMATION
  Report Type: Report from Study
  Country: CA (occurrence: CA)
  Receive Date: 20200305
  Receipt Date: 20200320
  Transmission Date: 20200409
  Serious: Yes (Other)
  Sender: FDA-Public Use
  Company Number: CA-EMD SERONO-9148673

PATIENT
  Age: 42 Year
  Sex: Female

DRUGS (2)
  1. MAVENCLAD [Suspect]
     Active Substance: CLADRIBINE
     Dosage: YEAR ONE WEEK FIVE TREATMENT.
     Route: 048
  2. MAVENCLAD [Suspect]
     Active Substance: CLADRIBINE
     Indication: MULTIPLE SCLEROSIS
     Dosage: YEAR ONE WEEK ONE TREATMENT.
     Route: 048
     Dates: start: 20190828

REACTIONS (11)
  - Bradycardia [Unknown]
  - Chest pain [Unknown]
  - Weight decreased [Unknown]
  - Adrenal adenoma [Not Recovered/Not Resolved]
  - Paraesthesia [Unknown]
  - Nausea [Unknown]
  - Rash [Unknown]
  - Multiple sclerosis relapse [Recovering/Resolving]
  - Lymphocyte count decreased [Unknown]
  - Skin warm [Unknown]
  - Ageusia [Unknown]

NARRATIVE: CASE EVENT DATE: 20190828
